FAERS Safety Report 7603522-5 (Version None)
Quarter: 2011Q3

REPORT INFORMATION
  Report Type: 
  Country: None (occurrence: None)
  Receive Date: 20110711
  Receipt Date: 20110711
  Transmission Date: 20111222
  Serious: Yes (Hospitalization)
  Sender: FDA-Public Use
  Company Number: None

PATIENT
  Sex: Female
  Weight: 72.72 kg

DRUGS (2)
  1. CISPLATIN [Suspect]
     Dosage: 40 MG
  2. TOPOTECAN [Suspect]
     Dosage: .5 MG

REACTIONS (7)
  - NEUTROPHIL COUNT DECREASED [None]
  - PYREXIA [None]
  - ENTEROCOCCUS TEST POSITIVE [None]
  - ANAEMIA [None]
  - NAUSEA [None]
  - PLATELET COUNT DECREASED [None]
  - WHITE BLOOD CELL COUNT DECREASED [None]
